FAERS Safety Report 7684261-1 (Version None)
Quarter: 2011Q3

REPORT INFORMATION
  Report Type: 
  Country: None (occurrence: None)
  Receive Date: 20110815
  Receipt Date: 20110801
  Transmission Date: 20111222
  Serious: No
  Sender: FDA-Public Use
  Company Number: US-B.I. PHARMACEUTICALS,INC./RIDGEFIELD-2011-BP-18837BP

PATIENT
  Age: 59 Year
  Sex: Female

DRUGS (22)
  1. LEVOXYL [Concomitant]
     Indication: THYROID DISORDER
  2. LISINOPRIL [Concomitant]
     Indication: PROPHYLAXIS
  3. HYOSCYAMINE [Concomitant]
     Indication: IRRITABLE BOWEL SYNDROME
  4. MULTAQ [Concomitant]
     Indication: ATRIAL FIBRILLATION
  5. JUICE PLUS [Concomitant]
     Indication: SUPPLEMENTATION THERAPY
  6. PRADAXA [Suspect]
     Indication: ATRIAL FIBRILLATION
     Dosage: 300 MG
     Route: 048
     Dates: start: 20110714
  7. GLYBURIDE [Concomitant]
     Indication: DIABETES MELLITUS
  8. XANAX [Concomitant]
     Indication: ANXIETY
  9. DEXILANT [Concomitant]
     Indication: HIATUS HERNIA
  10. METFORMIN HCL [Concomitant]
     Indication: DIABETES MELLITUS
  11. WELLBUTRIN [Concomitant]
     Indication: DEPRESSION
  12. CRESTOR [Concomitant]
     Indication: BLOOD CHOLESTEROL INCREASED
  13. FISH OIL [Concomitant]
     Indication: SUPPLEMENTATION THERAPY
  14. PROZAC [Concomitant]
     Indication: DEPRESSION
  15. Q-10 [Concomitant]
     Indication: SUPPLEMENTATION THERAPY
  16. DEXILANT [Concomitant]
     Indication: DYSPEPSIA
     Dates: start: 20110701
  17. NEXIUM [Concomitant]
     Indication: HIATUS HERNIA
  18. AMBIEN [Concomitant]
     Indication: SLEEP DISORDER
  19. NEXIUM [Concomitant]
     Indication: DYSPEPSIA
     Dates: end: 20110701
  20. PROZAC [Concomitant]
     Indication: ANXIETY
  21. DEXILANT [Concomitant]
     Indication: IRRITABLE BOWEL SYNDROME
  22. NEXIUM [Concomitant]
     Indication: IRRITABLE BOWEL SYNDROME

REACTIONS (4)
  - RHINORRHOEA [None]
  - LACRIMATION INCREASED [None]
  - SNEEZING [None]
  - PRURITUS [None]
